FAERS Safety Report 12234818 (Version 1)
Quarter: 2016Q2

REPORT INFORMATION
  Report Type: Spontaneous
  Country: IT (occurrence: IT)
  Receive Date: 20160404
  Receipt Date: 20160404
  Transmission Date: 20160815
  Serious: Yes (Hospitalization, Other)
  Sender: FDA-Public Use
  Company Number: IT-ELI_LILLY_AND_COMPANY-IT201603007601

PATIENT
  Age: 68 Year
  Sex: Female

DRUGS (3)
  1. FORSTEO [Suspect]
     Active Substance: TERIPARATIDE
     Dosage: UNK
     Route: 065
     Dates: start: 201409
  2. FORSTEO [Suspect]
     Active Substance: TERIPARATIDE
     Indication: PRODUCT USED FOR UNKNOWN INDICATION
     Dosage: UNK UNK, UNKNOWN
     Route: 065
     Dates: start: 201402, end: 201406
  3. INDERAL [Concomitant]
     Active Substance: PROPRANOLOL HYDROCHLORIDE

REACTIONS (7)
  - Cervical vertebral fracture [Unknown]
  - Lumbar vertebral fracture [Unknown]
  - Fractured sacrum [Unknown]
  - Colon cancer [Unknown]
  - Procedural haemorrhage [Unknown]
  - Hypertension [Unknown]
  - Fall [Unknown]

NARRATIVE: CASE EVENT DATE: 2014
